FAERS Safety Report 22145138 (Version 1)
Quarter: 2023Q1

REPORT INFORMATION
  Report Type: Other
  Country: CA (occurrence: CA)
  Receive Date: 20230328
  Receipt Date: 20230328
  Transmission Date: 20230417
  Serious: Yes (Other)
  Sender: FDA-Public Use
  Company Number: CA-APOTEX-2023AP005837

PATIENT
  Age: 54 Year
  Sex: Male

DRUGS (1)
  1. PREGABALIN [Suspect]
     Active Substance: PREGABALIN
     Indication: Neurectomy
     Dosage: 150 MILLIGRAM, BID
     Route: 048

REACTIONS (2)
  - Low density lipoprotein increased [Recovered/Resolved]
  - Off label use [Recovered/Resolved]
